FAERS Safety Report 19069533 (Version 1)
Quarter: 2021Q1

REPORT INFORMATION
  Report Type: Spontaneous
  Country: US (occurrence: US)
  Receive Date: 20210329
  Receipt Date: 20210329
  Transmission Date: 20210420
  Serious: No
  Sender: FDA-Public Use
  Company Number: None

PATIENT
  Age: 73 Year
  Sex: Female
  Weight: 69.75 kg

DRUGS (10)
  1. MULTI VITAMIN [Concomitant]
     Active Substance: VITAMINS
  2. ALDACTONE [Concomitant]
     Active Substance: SPIRONOLACTONE
  3. FISH OIL [Concomitant]
     Active Substance: FISH OIL
  4. ATORVASTATIN?NOW D/C^D [Suspect]
     Active Substance: ATORVASTATIN
     Indication: BLOOD CHOLESTEROL INCREASED
     Dosage: ?          QUANTITY:1 TABLET(S);?
     Route: 048
     Dates: start: 20190419, end: 20210326
  5. LOSARTAN. [Concomitant]
     Active Substance: LOSARTAN
  6. HCTZ [Concomitant]
     Active Substance: HYDROCHLOROTHIAZIDE
  7. SAM E [Concomitant]
  8. TOPROL XL [Concomitant]
     Active Substance: METOPROLOL SUCCINATE
  9. ASA [Concomitant]
     Active Substance: ASPIRIN
  10. STATIN [Concomitant]
     Active Substance: UNSPECIFIED INGREDIENT

REACTIONS (7)
  - Arthralgia [None]
  - Pain in extremity [None]
  - Tendonitis [None]
  - Discomfort [None]
  - Tendon rupture [None]
  - Pain [None]
  - Tendon disorder [None]

NARRATIVE: CASE EVENT DATE: 20201112
